FAERS Safety Report 5489995-5 (Version None)
Quarter: 2007Q4

REPORT INFORMATION
  Report Type: 
  Country: None (occurrence: None)
  Receive Date: 20071018
  Receipt Date: 20071017
  Transmission Date: 20080405
  Serious: Yes (Other)
  Sender: FDA-Public Use
  Company Number: US-ASTRAZENECA-2007UW19846

PATIENT
  Age: 19 Year
  Sex: Female
  Weight: 61.4 kg

DRUGS (3)
  1. ZOMIG [Suspect]
     Indication: MIGRAINE WITHOUT AURA
     Route: 048
     Dates: start: 20070813, end: 20070813
  2. TOPAMAX [Concomitant]
     Indication: HEADACHE
     Route: 048
     Dates: start: 20070807
  3. DEPO-PROVERA [Concomitant]
     Indication: CONTRACEPTION

REACTIONS (6)
  - COLD SWEAT [None]
  - CONVULSION [None]
  - MUSCLE TIGHTNESS [None]
  - MYALGIA [None]
  - RESPIRATORY RATE DECREASED [None]
  - TONGUE BITING [None]
